FAERS Safety Report 6275495-1 (Version None)
Quarter: 2009Q3

REPORT INFORMATION
  Report Type: 
  Country: None (occurrence: None)
  Receive Date: 20090721
  Receipt Date: 20090716
  Transmission Date: 20100115
  Serious: Yes (Life-Threatening, Hospitalization, Other)
  Sender: FDA-Public Use
  Company Number: PT-GENENTECH-269473

PATIENT
  Sex: Female

DRUGS (11)
  1. MABTHERA [Suspect]
     Indication: RHEUMATOID ARTHRITIS
     Dosage: 1 G, UNK
     Dates: start: 20080528, end: 20080609
  2. METHOTREXATE [Concomitant]
     Indication: DRUG USE FOR UNKNOWN INDICATION
     Dosage: UNK
     Dates: start: 20050101
  3. FOLICIL [Concomitant]
     Indication: DRUG USE FOR UNKNOWN INDICATION
     Dosage: UNK
     Dates: start: 20050101
  4. PREDNISOLONE [Concomitant]
     Indication: DRUG USE FOR UNKNOWN INDICATION
     Dosage: UNK
     Dates: start: 20050101
  5. CALCIUM [Concomitant]
     Indication: DRUG USE FOR UNKNOWN INDICATION
  6. ASPIRIN [Concomitant]
     Indication: DRUG USE FOR UNKNOWN INDICATION
  7. PLAQUENIL [Concomitant]
     Indication: DRUG USE FOR UNKNOWN INDICATION
  8. FOSAMAX [Concomitant]
     Indication: DRUG USE FOR UNKNOWN INDICATION
  9. ZARATOR [Concomitant]
     Indication: DRUG USE FOR UNKNOWN INDICATION
     Dosage: UNK
     Dates: end: 20080926
  10. NEURONTIN [Concomitant]
     Indication: DRUG USE FOR UNKNOWN INDICATION
     Dosage: UNK
     Dates: end: 20080926
  11. TOPAMAX [Concomitant]
     Indication: DRUG USE FOR UNKNOWN INDICATION
     Dosage: UNK
     Dates: end: 20080926

REACTIONS (10)
  - ABDOMINAL PAIN UPPER [None]
  - APHTHOUS STOMATITIS [None]
  - CHILLS [None]
  - DIARRHOEA [None]
  - FEBRILE NEUTROPENIA [None]
  - GINGIVITIS [None]
  - LYMPHOPENIA [None]
  - MYALGIA [None]
  - NAUSEA [None]
  - RUBELLA [None]
